FAERS Safety Report 9552079 (Version 1)
Quarter: 2013Q3

REPORT INFORMATION
  Report Type: Spontaneous
  Country: US (occurrence: US)
  Receive Date: 20130925
  Receipt Date: 20130925
  Transmission Date: 20140515
  Serious: Yes (Other)
  Sender: FDA-Public Use
  Company Number: PHEH2013US019579

PATIENT
  Sex: Male

DRUGS (3)
  1. DIOVAN HCT [Suspect]
     Dosage: 1 DF (160 MG VAL+25 MG HCT), QD
     Route: 048
  2. LIPITOR [Concomitant]
     Dosage: UNK UKN, UNK
  3. JANUMET [Concomitant]

REACTIONS (3)
  - Diabetes mellitus [Unknown]
  - Procedural complication [Unknown]
  - Arthralgia [Unknown]
